FAERS Safety Report 25248303 (Version 2)
Quarter: 2025Q2

REPORT INFORMATION
  Report Type: Report from Study
  Country: US (occurrence: US)
  Receive Date: 20250429
  Receipt Date: 20250513
  Transmission Date: 20250716
  Serious: Yes (Other)
  Sender: EXELIXIS
  Company Number: US-EXELIXIS-EXL-2025-006789

PATIENT
  Age: 80 Year
  Sex: Male
  Weight: 87.982 kg

DRUGS (25)
  1. COMETRIQ [Suspect]
     Active Substance: CABOZANTINIB S-MALATE
     Indication: Neuroendocrine tumour of the lung metastatic
     Dosage: 40 MG, QD
     Route: 048
     Dates: start: 20250224, end: 20250226
  2. COMETRIQ [Suspect]
     Active Substance: CABOZANTINIB S-MALATE
     Indication: Metastases to liver
     Dosage: 40 MG, QD
     Route: 048
     Dates: start: 202503
  3. COMETRIQ [Suspect]
     Active Substance: CABOZANTINIB S-MALATE
     Indication: Metastases to bone
     Dosage: 60 MG, QD (TAKE 3 CAPSULES OF 20 MG)
     Route: 048
     Dates: start: 20250326
  4. COMETRIQ [Suspect]
     Active Substance: CABOZANTINIB S-MALATE
     Indication: Metastases to pancreas
     Dosage: 40 MG, QD (TWO 20 MG TABLETS PER DAY))
     Route: 048
     Dates: start: 20250422
  5. LANREOTIDE [Concomitant]
     Active Substance: LANREOTIDE
     Indication: Neuroendocrine tumour of the lung metastatic
  6. ONDANSETRON [Concomitant]
     Active Substance: ONDANSETRON
  7. FLUDROCORTISONE [Concomitant]
     Active Substance: FLUDROCORTISONE
  8. URO-MP [Concomitant]
     Active Substance: HYOSCYAMINE SULFATE\METHENAMINE\METHYLENE BLUE\PHENYL SALICYLATE\SODIUM PHOSPHATE, MONOBASIC, MONOHY
  9. MIDODRINE [Concomitant]
     Active Substance: MIDODRINE
  10. FINASTERIDE [Concomitant]
     Active Substance: FINASTERIDE
  11. JANUVIA [Concomitant]
     Active Substance: SITAGLIPTIN PHOSPHATE
  12. GABAPENTIN [Concomitant]
     Active Substance: GABAPENTIN
  13. ACETAMINOPHEN [Concomitant]
     Active Substance: ACETAMINOPHEN
  14. VALSARTAN [Concomitant]
     Active Substance: VALSARTAN
  15. TAMSULOSIN [Concomitant]
     Active Substance: TAMSULOSIN
  16. VITAMIN D2 [Concomitant]
     Active Substance: ERGOCALCIFEROL
  17. DULOXETINE [Concomitant]
     Active Substance: DULOXETINE
  18. ALBUTEROL [Concomitant]
     Active Substance: ALBUTEROL
  19. ASPIRIN [Concomitant]
     Active Substance: ASPIRIN
  20. OMEPRAZOLE [Concomitant]
     Active Substance: OMEPRAZOLE
  21. ROSUVASTATIN [Concomitant]
     Active Substance: ROSUVASTATIN
  22. VITAMINS [Concomitant]
     Active Substance: VITAMINS
  23. EZETIMIBE [Concomitant]
     Active Substance: EZETIMIBE
  24. LEVOTHYROXINE [Concomitant]
     Active Substance: LEVOTHYROXINE
  25. SANDOSTATIN [Concomitant]
     Active Substance: OCTREOTIDE ACETATE

REACTIONS (30)
  - Syncope [Unknown]
  - Electric shock sensation [Unknown]
  - Chest pain [Unknown]
  - Somnolence [Unknown]
  - Loss of personal independence in daily activities [Unknown]
  - Diplopia [Unknown]
  - Arthritis [Recovering/Resolving]
  - Hyperhidrosis [Unknown]
  - Flushing [Unknown]
  - Confusional state [Unknown]
  - Speech disorder [Unknown]
  - Dyspnoea [Not Recovered/Not Resolved]
  - Tremor [Not Recovered/Not Resolved]
  - Sensitive skin [Unknown]
  - Back pain [Unknown]
  - Mouth swelling [Unknown]
  - Fatigue [Not Recovered/Not Resolved]
  - Asthenia [Unknown]
  - Abdominal pain [Unknown]
  - Dizziness [Not Recovered/Not Resolved]
  - Blood pressure fluctuation [Unknown]
  - Decreased appetite [Unknown]
  - Stomatitis [Unknown]
  - Rash [Recovered/Resolved]
  - Diarrhoea [Recovered/Resolved]
  - Dry skin [Unknown]
  - Palpitations [Unknown]
  - Tachycardia [Unknown]
  - Anxiety [Unknown]
  - Off label use [Unknown]

NARRATIVE: CASE EVENT DATE: 20250401
